FAERS Safety Report 18798821 (Version 1)
Quarter: 2021Q1

REPORT INFORMATION
  Report Type: Spontaneous
  Country: US (occurrence: US)
  Receive Date: 20210127
  Receipt Date: 20210127
  Transmission Date: 20210419
  Serious: Yes (Other)
  Sender: FDA-Public Use
  Company Number: None

PATIENT
  Age: 52 Year
  Sex: Female

DRUGS (1)
  1. METFORMIN [Suspect]
     Active Substance: METFORMIN HYDROCHLORIDE
     Indication: DIABETES PROPHYLAXIS
     Dosage: ?          QUANTITY:2 TABLET(S);?
     Route: 048
     Dates: start: 20210125, end: 20210127

REACTIONS (5)
  - Product quality issue [None]
  - Feeling abnormal [None]
  - Blood glucose increased [None]
  - Product substitution issue [None]
  - Drug ineffective [None]

NARRATIVE: CASE EVENT DATE: 20210125
